FAERS Safety Report 21006426 (Version 5)
Quarter: 2023Q1

REPORT INFORMATION
  Report Type: Spontaneous
  Country: BR (occurrence: BR)
  Receive Date: 20220624
  Receipt Date: 20230303
  Transmission Date: 20230417
  Serious: Yes (Hospitalization, Disabling, Other)
  Sender: FDA-Public Use
  Company Number: BR-SA-SAC20220519000023

PATIENT

DRUGS (1)
  1. LARONIDASE [Suspect]
     Active Substance: LARONIDASE
     Indication: Mucopolysaccharidosis I
     Dosage: 3 DF, QW
     Route: 042
     Dates: start: 20191001, end: 20220331

REACTIONS (11)
  - Hydrocephalus [Recovering/Resolving]
  - Seizure [Recovering/Resolving]
  - Cardiac arrest [Recovering/Resolving]
  - Immobile [Recovering/Resolving]
  - Bedridden [Recovering/Resolving]
  - Pyrexia [Recovering/Resolving]
  - Diarrhoea [Recovering/Resolving]
  - Weight decreased [Recovering/Resolving]
  - Speech disorder [Recovering/Resolving]
  - Gastrostomy [Recovering/Resolving]
  - Tracheostomy [Recovering/Resolving]

NARRATIVE: CASE EVENT DATE: 20220101
